FAERS Safety Report 6147200-0 (Version None)
Quarter: 2009Q2

REPORT INFORMATION
  Report Type: 
  Country: None (occurrence: None)
  Receive Date: 20090407
  Receipt Date: 20081125
  Transmission Date: 20091009
  Serious: No
  Sender: FDA-Public Use
  Company Number: US-TYCO HEALTHCARE/MALLINCKRODT-T200802011

PATIENT

DRUGS (5)
  1. METHADOSE [Suspect]
     Dosage: NOT ADMINISTERED
  2. BENADRYL [Concomitant]
  3. OXYCODONE HCL [Concomitant]
  4. HYDROCODONE BITARTRATE [Concomitant]
  5. SOMA [Concomitant]

REACTIONS (1)
  - DRUG SCREEN FALSE POSITIVE [None]
